FAERS Safety Report 8818907 (Version 1)
Quarter: 2012Q4

REPORT INFORMATION
  Report Type: 
  Country: AT (occurrence: AT)
  Receive Date: 20121001
  Receipt Date: 20121001
  Transmission Date: 20130627
  Serious: Yes (Death, Hospitalization)
  Sender: FDA-Public Use
  Company Number: PHHY2012AT083788

PATIENT
  Age: 61 Year
  Sex: Male

DRUGS (7)
  1. EXJADE [Suspect]
     Indication: ACUTE MYELOID LEUKAEMIA
     Dosage: 2000 mg, UNK
  2. NOVOMIX [Concomitant]
     Indication: DIABETES MELLITUS
  3. EUTHYROX [Concomitant]
     Indication: HYPOTHYROIDISM
     Dosage: 125 ug, per day
  4. TRITTICO [Concomitant]
     Indication: DEPRESSION
     Dosage: 100 mg, per day
  5. EFECTIN [Concomitant]
     Indication: DEPRESSION
     Dosage: 75 mg, UNK
  6. LAEVOLAC [Concomitant]
     Indication: CONSTIPATION
  7. PANTOLOC [Concomitant]
     Dosage: 40 mg/day

REACTIONS (8)
  - Pneumonia [Fatal]
  - Acute myeloid leukaemia [Fatal]
  - Pyrexia [Unknown]
  - Pain in extremity [Unknown]
  - Chest pain [Unknown]
  - Pulmonary mass [Unknown]
  - Acute febrile neutrophilic dermatosis [Unknown]
  - Respiratory failure [Unknown]
